FAERS Safety Report 16773592 (Version 4)
Quarter: 2020Q4

REPORT INFORMATION
  Report Type: Report from Study
  Country: US (occurrence: US)
  Receive Date: 20190904
  Receipt Date: 20201229
  Transmission Date: 20210113
  Serious: No
  Sender: FDA-Public Use
  Company Number: PHEH2019US036349

PATIENT
  Sex: Male

DRUGS (2)
  1. COSENTYX [Suspect]
     Active Substance: SECUKINUMAB
     Indication: PSORIASIS
     Dosage: 300 MG, QW
     Route: 058
  2. COSENTYX [Suspect]
     Active Substance: SECUKINUMAB
     Dosage: 300 MG, QMO
     Route: 058

REACTIONS (7)
  - Injection site pain [Recovered/Resolved]
  - Influenza like illness [Unknown]
  - Oropharyngeal pain [Unknown]
  - Cough [Unknown]
  - Injection site discomfort [Recovered/Resolved]
  - Diarrhoea [Recovered/Resolved]
  - Illness [Unknown]
